FAERS Safety Report 5777026-9 (Version None)
Quarter: 2008Q2

REPORT INFORMATION
  Report Type: 
  Country: None (occurrence: None)
  Receive Date: 20080617
  Receipt Date: 20080617
  Transmission Date: 20081010
  Serious: No
  Sender: FDA-Public Use
  Company Number: None

PATIENT
  Age: 44 Year
  Weight: 104.3273 kg

DRUGS (2)
  1. PROVIGIL [Suspect]
     Indication: SLEEP DISORDER
     Dosage: ONE DAILY PO
     Route: 048
     Dates: start: 20080407, end: 20080614
  2. PROVIGIL [Suspect]

REACTIONS (3)
  - DRUG INEFFECTIVE [None]
  - MEDICATION ERROR [None]
  - PHARMACEUTICAL PRODUCT COMPLAINT [None]
